FAERS Safety Report 25838263 (Version 1)
Quarter: 2025Q3

REPORT INFORMATION
  Report Type: Report from Study
  Country: EU (occurrence: EU)
  Receive Date: 20250923
  Receipt Date: 20250923
  Transmission Date: 20251020
  Serious: Yes (Hospitalization)
  Sender: ABBVIE
  Company Number: EU-ABBVIE-6469647

PATIENT
  Age: 66 Year
  Sex: Female

DRUGS (10)
  1. SKYRIZI [Suspect]
     Active Substance: RISANKIZUMAB-RZAA
     Indication: Psoriasis
     Route: 058
     Dates: start: 20220222
  2. XARELTO [Concomitant]
     Active Substance: RIVAROXABAN
     Indication: Thrombosis prophylaxis
  3. CANDESARTAN [Concomitant]
     Active Substance: CANDESARTAN
     Indication: Product used for unknown indication
  4. AMLODIPINE [Concomitant]
     Active Substance: AMLODIPINE BESYLATE
     Indication: Product used for unknown indication
  5. LEVOTHYROXINE SODIUM\POTASSIUM IODIDE [Concomitant]
     Active Substance: LEVOTHYROXINE SODIUM\POTASSIUM IODIDE
     Indication: Product used for unknown indication
  6. TROSPIUM CHLORIDE [Concomitant]
     Active Substance: TROSPIUM CHLORIDE
     Indication: Product used for unknown indication
  7. OXYCODONE [Concomitant]
     Active Substance: OXYCODONE
     Indication: Product used for unknown indication
  8. METAMIZOLE [Concomitant]
     Active Substance: METAMIZOLE
     Indication: Procedural pain
  9. POLYETHYLENE GLYCOLS [Concomitant]
     Active Substance: POLYETHYLENE GLYCOLS
     Indication: Product used for unknown indication
  10. Covid-19 vaccines [Concomitant]
     Indication: COVID-19 prophylaxis
     Route: 030

REACTIONS (13)
  - Osteonecrosis [Recovered/Resolved]
  - Osteoarthritis [Recovered/Resolved]
  - Mobility decreased [Unknown]
  - Soft tissue disorder [Unknown]
  - Condition aggravated [Unknown]
  - Hypertension [Unknown]
  - Impaired quality of life [Unknown]
  - Joint dislocation [Unknown]
  - Post procedural swelling [Unknown]
  - Transferrin decreased [Unknown]
  - Gamma-glutamyltransferase increased [Unknown]
  - Gamma-glutamyltransferase increased [Unknown]
  - C-reactive protein increased [Unknown]

NARRATIVE: CASE EVENT DATE: 20240101
